FAERS Safety Report 21813014 (Version 1)
Quarter: 2023Q1

REPORT INFORMATION
  Report Type: Spontaneous
  Country: IN (occurrence: IN)
  Receive Date: 20230103
  Receipt Date: 20230103
  Transmission Date: 20230418
  Serious: Yes (Hospitalization, Other)
  Sender: FDA-Public Use
  Company Number: IN-MLMSERVICE-20221226-4002848-1

PATIENT
  Age: 1 Year
  Sex: Male

DRUGS (1)
  1. MINOXIDIL [Suspect]
     Active Substance: MINOXIDIL
     Indication: Accidental exposure to product
     Dosage: 3 -5 ML (150-250 MG OF MINOXIDIL)
     Route: 048

REACTIONS (5)
  - Accidental exposure to product by child [Recovered/Resolved]
  - Incorrect route of product administration [Recovered/Resolved]
  - Sinus tachycardia [Recovered/Resolved]
  - Somnolence [Recovered/Resolved]
  - Hypotension [Recovered/Resolved]
